FAERS Safety Report 4395298-2 (Version None)
Quarter: 2004Q2

REPORT INFORMATION
  Report Type: 
  Country: None (occurrence: None)
  Receive Date: 20040621
  Receipt Date: 20031024
  Transmission Date: 20050107
  Serious: Yes (Other)
  Sender: FDA-Public Use
  Company Number: USA-2003-0010442

PATIENT
  Age: 37 Year
  Sex: Female

DRUGS (14)
  1. OXYCONTIN [Suspect]
     Indication: PAIN
     Dosage: 160 MG, Q12H, ORAL
     Route: 048
     Dates: start: 19990101, end: 20031001
  2. TORADOL [Suspect]
     Indication: PAIN
  3. FLEXERIL [Suspect]
     Indication: PAIN
  4. TYLENOL W/ CODEINE [Suspect]
     Indication: PAIN
  5. HUMIBID [Concomitant]
  6. MEDROL [Concomitant]
  7. PREVACID [Concomitant]
  8. SINGULAIR [Concomitant]
  9. COMBIVENT [Concomitant]
  10. REGULAR INSULIN [Concomitant]
  11. NPH INSULIN [Concomitant]
  12. POTASSIUM [Concomitant]
  13. LASIX [Concomitant]
  14. VALIUM [Concomitant]

REACTIONS (2)
  - DRUG DEPENDENCE [None]
  - TOOTH LOSS [None]
